FAERS Safety Report 8389302-4 (Version None)
Quarter: 2012Q2

REPORT INFORMATION
  Report Type: 
  Country: None (occurrence: None)
  Receive Date: 20120528
  Receipt Date: 20120517
  Transmission Date: 20120825
  Serious: Yes (Other)
  Sender: FDA-Public Use
  Company Number: GB-ELI_LILLY_AND_COMPANY-GB201205005945

PATIENT
  Sex: Male
  Weight: 77.4 kg

DRUGS (7)
  1. TAXOL [Suspect]
     Indication: NON-SMALL CELL LUNG CANCER
     Dosage: 175 MG/M2, UNK
     Route: 042
     Dates: start: 20120209, end: 20120412
  2. DICLOFENAC SODIUM [Concomitant]
     Indication: ANALGESIC THERAPY
     Dosage: 25 MG, QID
     Route: 048
     Dates: start: 20111003
  3. PEMETREXED [Suspect]
     Indication: NON-SMALL CELL LUNG CANCER
     Dosage: 500 MG/M2, UNK
     Route: 042
     Dates: start: 20120209, end: 20120412
  4. FOLIC ACID [Concomitant]
     Indication: VITAMIN SUPPLEMENTATION
     Dosage: 400 UG, QD
     Route: 048
     Dates: start: 20120130
  5. ACETAMINOPHEN AND CODEINE PHOSPHATE [Concomitant]
     Indication: ANALGESIC THERAPY
     Dosage: 30-500 MG, PRN
     Route: 048
     Dates: start: 20110923
  6. VITAMIN B-12 [Concomitant]
     Indication: VITAMIN SUPPLEMENTATION
     Dosage: 1000 UG, EVERY 9 WEEKS
     Route: 030
     Dates: start: 20120130
  7. DIAZEPAM [Concomitant]
     Indication: ANXIETY
     Dosage: 2 MG, QID
     Route: 048
     Dates: start: 20111003

REACTIONS (1)
  - DEEP VEIN THROMBOSIS [None]
